FAERS Safety Report 6298032-4 (Version None)
Quarter: 2009Q3

REPORT INFORMATION
  Report Type: 
  Country: None (occurrence: None)
  Receive Date: 20090805
  Receipt Date: 20090730
  Transmission Date: 20100115
  Serious: Yes (Life-Threatening)
  Sender: FDA-Public Use
  Company Number: DE-ELI_LILLY_AND_COMPANY-DE200907006771

PATIENT
  Sex: Male
  Weight: 113 kg

DRUGS (7)
  1. BYETTA [Suspect]
     Indication: TYPE 2 DIABETES MELLITUS
     Dosage: 10 UG, 2/D
     Route: 058
     Dates: start: 20080118, end: 20090427
  2. THYRONAJOD [Concomitant]
     Indication: GOITRE
     Dosage: 125 MG, UNKNOWN
     Route: 048
  3. METFORMIN [Concomitant]
     Indication: TYPE 2 DIABETES MELLITUS
     Dosage: 1700 MG, UNKNOWN
     Route: 048
  4. BELOC ZOK [Concomitant]
     Indication: HYPERTENSION
     Dosage: 95 MG, UNKNOWN
     Route: 048
  5. SORTIS [Concomitant]
     Dosage: 20 MG, UNKNOWN
     Route: 065
  6. PLAVIX [Concomitant]
     Dosage: 75 MG, UNKNOWN
     Route: 065
  7. ALLOPURINOL [Concomitant]
     Dosage: 150 MG, UNKNOWN
     Route: 065

REACTIONS (1)
  - GASTRIC ULCER HAEMORRHAGE [None]
